FAERS Safety Report 21721574 (Version 1)
Quarter: 2022Q4

REPORT INFORMATION
  Report Type: Spontaneous
  Country: US (occurrence: US)
  Receive Date: 20221213
  Receipt Date: 20221213
  Transmission Date: 20230113
  Serious: No
  Sender: FDA-Public Use
  Company Number: US-ALKERMES INC.-ALK-2022-005885

PATIENT
  Age: 35 Year
  Sex: Male
  Weight: 90.703 kg

DRUGS (1)
  1. VIVITROL [Suspect]
     Active Substance: NALTREXONE
     Indication: Alcoholism
     Dosage: 380 MILLIGRAM, QMO
     Route: 030
     Dates: start: 20221206

REACTIONS (13)
  - Feeling abnormal [Unknown]
  - Head discomfort [Unknown]
  - Discomfort [Unknown]
  - Tremor [Unknown]
  - Ear discomfort [Unknown]
  - Otorrhoea [Unknown]
  - Infection [Unknown]
  - Nervousness [Unknown]
  - Dizziness [Unknown]
  - Headache [Unknown]
  - Injection site reaction [Unknown]
  - Injection site bruising [Unknown]
  - Constipation [Unknown]

NARRATIVE: CASE EVENT DATE: 20221206
